FAERS Safety Report 4490066-5 (Version None)
Quarter: 2004Q4

REPORT INFORMATION
  Report Type: 
  Country: None (occurrence: None)
  Receive Date: 20041027
  Receipt Date: 20041012
  Transmission Date: 20050328
  Serious: Yes (Death)
  Sender: FDA-Public Use
  Company Number: 2004-BP-09891RO

PATIENT
  Age: 12 Year
  Sex: Male

DRUGS (5)
  1. PREDNISONE [Suspect]
     Dosage: 200 MG BID (50 MG), PO
     Route: 048
  2. PRIMIDONE [Suspect]
     Indication: CONVULSION
     Dosage: 50 MG, PO
     Route: 048
  3. VALPROIC ACID [Concomitant]
  4. LEVETIRACETAM [Concomitant]
  5. ZONISAMIDE (ZONISAMIDE) [Concomitant]

REACTIONS (6)
  - CEREBELLAR ATROPHY [None]
  - CONVULSION [None]
  - DIABETES MELLITUS [None]
  - DIABETIC KETOACIDOSIS [None]
  - HYDROCEPHALUS [None]
  - MEDICATION ERROR [None]
